FAERS Safety Report 10796067 (Version 2)
Quarter: 2015Q1

REPORT INFORMATION
  Report Type: Spontaneous
  Country: BR (occurrence: BR)
  Receive Date: 20150216
  Receipt Date: 20150310
  Transmission Date: 20150721
  Serious: Yes (Hospitalization, Other)
  Sender: FDA-Public Use
  Company Number: BR-ROCHE-1538139

PATIENT
  Age: 85 Year
  Sex: Female
  Weight: 70 kg

DRUGS (1)
  1. VALIUM [Suspect]
     Active Substance: DIAZEPAM
     Indication: INSOMNIA
     Dosage: ONE OR ONE AND HALF TABLET PER DAY
     Route: 048
     Dates: start: 2005

REACTIONS (4)
  - Femur fracture [Unknown]
  - Medical device pain [Unknown]
  - Osteoporosis [Not Recovered/Not Resolved]
  - Fall [Unknown]
